FAERS Safety Report 5295468-5 (Version None)
Quarter: 2007Q2

REPORT INFORMATION
  Report Type: 
  Country: None (occurrence: None)
  Receive Date: 20070412
  Receipt Date: 20070410
  Transmission Date: 20071010
  Serious: Yes (Life-Threatening)
  Sender: FDA-Public Use
  Company Number: ES-PFIZER INC-2007028154

PATIENT
  Sex: Male

DRUGS (1)
  1. TRANKIMAZIN [Suspect]
     Indication: SELF-MEDICATION
     Route: 048

REACTIONS (2)
  - DRUG DEPENDENCE [None]
  - SUICIDE ATTEMPT [None]
